FAERS Safety Report 4430506-0 (Version None)
Quarter: 2004Q3

REPORT INFORMATION
  Report Type: 
  Country: None (occurrence: None)
  Receive Date: 20040721
  Receipt Date: 20040518
  Transmission Date: 20050211
  Serious: No
  Sender: FDA-Public Use
  Company Number: 2004UW10763

PATIENT
  Age: 72 Year
  Sex: Male
  Weight: 104.3273 kg

DRUGS (5)
  1. PRILOSEC OTC [Suspect]
     Indication: GASTROOESOPHAGEAL REFLUX DISEASE
     Dosage: 1 DF ONCE PO
     Route: 048
     Dates: start: 20040518, end: 20040518
  2. AVAPRO [Suspect]
     Dates: end: 20040519
  3. GLUCOPHAGE [Concomitant]
  4. AVANDIA [Concomitant]
  5. VERAPAMIL [Concomitant]

REACTIONS (1)
  - HYPERSENSITIVITY [None]
